FAERS Safety Report 8028408-6 (Version None)
Quarter: 2012Q1

REPORT INFORMATION
  Report Type: 
  Country: None (occurrence: None)
  Receive Date: 20120106
  Receipt Date: 20120104
  Transmission Date: 20120608
  Serious: Yes (Hospitalization)
  Sender: FDA-Public Use
  Company Number: US-ROCHE-772179

PATIENT
  Sex: Male
  Weight: 92.616 kg

DRUGS (18)
  1. PHENERGAN [Concomitant]
     Dosage: TDD: 1 APP
  2. PROMETHAZINE [Concomitant]
     Dosage: TDD: 2 APP
  3. LOMOTIL [Concomitant]
     Dosage: 1 TAB
     Dates: start: 20100802
  4. ZOLOFT [Concomitant]
  5. ZOFRAN [Concomitant]
     Dates: start: 20100713
  6. LISINOPRIL [Concomitant]
     Dates: start: 20101208, end: 20110121
  7. VEMURAFENIB [Suspect]
     Route: 048
  8. METOPROLOL SUCCINATE [Concomitant]
  9. TESTOSTERONE [Concomitant]
  10. LISINOPRIL [Concomitant]
     Dates: start: 20100323, end: 20101207
  11. VEMURAFENIB [Suspect]
     Indication: METASTATIC MALIGNANT MELANOMA
     Dosage: LAST DOSE PRIOR TO SAE: 28/NOV/2010
     Route: 048
     Dates: start: 20100507, end: 20101129
  12. OXYCODONE HCL [Concomitant]
     Dosage: OXYCODONE IR
  13. OXYCODONE HCL [Concomitant]
     Dosage: 5-10 MG
  14. ACETAMINOPHEN [Concomitant]
  15. COMPAZINE [Concomitant]
  16. IMODIUM [Concomitant]
  17. CYANOCOBALAMIN [Concomitant]
     Dates: start: 20080301
  18. AMBIEN [Concomitant]
     Dates: start: 20100415

REACTIONS (1)
  - FALL [None]
